FAERS Safety Report 7309255-7 (Version None)
Quarter: 2011Q1

REPORT INFORMATION
  Report Type: 
  Country: None (occurrence: None)
  Receive Date: 20110223
  Receipt Date: 20110217
  Transmission Date: 20110831
  Serious: Yes (Hospitalization)
  Sender: FDA-Public Use
  Company Number: JP-PFIZER INC-2011025226

PATIENT
  Age: 74 Year
  Sex: Female
  Weight: 35 kg

DRUGS (13)
  1. LYRICA [Suspect]
     Indication: CHEST PAIN
  2. MAGNESIUM OXIDE [Concomitant]
     Indication: CONSTIPATION
     Dosage: 2 DF, 1X/DAY
     Route: 048
     Dates: start: 20090106, end: 20110106
  3. DIAZEPAM [Concomitant]
     Indication: INSOMNIA
     Dosage: 1 DF, 3X/DAY
     Route: 048
     Dates: start: 20090106, end: 20110106
  4. METHYCOBAL [Concomitant]
     Indication: HYPOAESTHESIA
     Dosage: 1 DF, 3X/DAY
     Route: 048
     Dates: start: 20090106, end: 20110106
  5. CRESTOR [Concomitant]
     Indication: HYPERLIPIDAEMIA
     Dosage: 1 DF, 1X/DAY
     Route: 048
     Dates: start: 20090106, end: 20110106
  6. HYPEN [Concomitant]
     Indication: BACK PAIN
  7. LYRICA [Suspect]
     Indication: PAIN IN EXTREMITY
     Dosage: 75 MG, 1X/DAY
     Route: 048
     Dates: start: 20110106, end: 20110106
  8. HYPEN [Concomitant]
     Indication: PAIN IN EXTREMITY
     Dosage: 1 DF, 2X/DAY
     Route: 048
     Dates: start: 20100218, end: 20110106
  9. PURSENNID [Concomitant]
     Indication: CONSTIPATION
     Dosage: 3 DF, 1X/DAY
     Route: 048
     Dates: start: 20090106, end: 20110106
  10. TRIAZOLAM [Concomitant]
     Indication: INSOMNIA
     Dosage: 2 DF, 1X/DAY
     Route: 048
     Dates: start: 20090417, end: 20110106
  11. MUCOSTA [Concomitant]
     Indication: PROPHYLAXIS AGAINST GASTROINTESTINAL ULCER
     Dosage: 1 DF, 2X/DAY
     Route: 048
     Dates: start: 20100218, end: 20110106
  12. BENZALIN [Concomitant]
     Indication: INSOMNIA
     Dosage: 1 DF, 1X/DAY
     Route: 048
     Dates: start: 20090106, end: 20110106
  13. GLAKAY [Concomitant]
     Indication: BONE DISORDER
     Dosage: 1 DF, 3X/DAY
     Route: 048
     Dates: start: 20090706, end: 20110106

REACTIONS (4)
  - BLOOD AMYLASE INCREASED [None]
  - ASTHENIA [None]
  - BLOOD CREATINE PHOSPHOKINASE INCREASED [None]
  - ALTERED STATE OF CONSCIOUSNESS [None]
